FAERS Safety Report 13615540 (Version 3)
Quarter: 2017Q4

REPORT INFORMATION
  Report Type: Spontaneous
  Country: US (occurrence: US)
  Receive Date: 20170606
  Receipt Date: 20171109
  Transmission Date: 20180320
  Serious: Yes (Hospitalization)
  Sender: FDA-Public Use
  Company Number: US-PFIZER INC-2017245591

PATIENT
  Age: 51 Year
  Sex: Female

DRUGS (2)
  1. METHOTREXATE SODIUM. [Suspect]
     Active Substance: METHOTREXATE SODIUM
     Indication: RHEUMATOID ARTHRITIS
     Dosage: 0.4 MG INJECTION
     Dates: start: 201601
  2. METHOTREXATE SODIUM. [Suspect]
     Active Substance: METHOTREXATE SODIUM
     Dosage: 0.4 ML, WEEKLY
     Route: 058
     Dates: start: 20160815

REACTIONS (19)
  - Alopecia [Recovered/Resolved]
  - Change of bowel habit [Unknown]
  - Oedema peripheral [Recovered/Resolved]
  - Dyspepsia [Unknown]
  - Red blood cell count decreased [Unknown]
  - Diarrhoea [Unknown]
  - Musculoskeletal stiffness [Not Recovered/Not Resolved]
  - Paraesthesia [Unknown]
  - Joint swelling [Unknown]
  - Visual impairment [Recovered/Resolved]
  - Nausea [Recovered/Resolved]
  - Weight gain poor [Not Recovered/Not Resolved]
  - Drug effect incomplete [Not Recovered/Not Resolved]
  - Sleep disorder [Recovered/Resolved]
  - Mucosal dryness [Unknown]
  - Weight decreased [Not Recovered/Not Resolved]
  - Joint hyperextension [Unknown]
  - Fatigue [Recovered/Resolved]
  - Dizziness [Unknown]

NARRATIVE: CASE EVENT DATE: 201601
